FAERS Safety Report 8727087 (Version 3)
Quarter: 2015Q2

REPORT INFORMATION
  Report Type: Report from Study
  Country: US (occurrence: US)
  Receive Date: 20120816
  Receipt Date: 20150626
  Transmission Date: 20150821
  Serious: Yes (Hospitalization, Other)
  Sender: FDA-Public Use
  Company Number: US-ROCHE-1101364

PATIENT
  Sex: Male

DRUGS (3)
  1. ACTIVASE [Suspect]
     Active Substance: ALTEPLASE
     Indication: ANGINA UNSTABLE
     Dosage: DOSE 1000 MG
     Route: 040
     Dates: start: 19930802
  2. LIDOCAINE. [Concomitant]
     Active Substance: LIDOCAINE
  3. HEPARIN [Concomitant]
     Active Substance: HEPARIN SODIUM

REACTIONS (3)
  - Dizziness [Unknown]
  - Hearing impaired [Unknown]
  - Dyspnoea [Unknown]
